FAERS Safety Report 5489020-6 (Version None)
Quarter: 2007Q4

REPORT INFORMATION
  Report Type: 
  Country: None (occurrence: None)
  Receive Date: 20071017
  Receipt Date: 20071009
  Transmission Date: 20080405
  Serious: Yes (Hospitalization)
  Sender: FDA-Public Use
  Company Number: US-ABBOTT-07P-163-0420009-00

PATIENT
  Sex: Female
  Weight: 79.45 kg

DRUGS (9)
  1. NIASPAN [Suspect]
     Indication: BLOOD CHOLESTEROL
     Dosage: WHITE
     Route: 048
     Dates: start: 20040101
  2. NIASPAN [Suspect]
     Dosage: WHITE
     Route: 048
  3. NIASPAN [Suspect]
     Route: 048
  4. NIASPAN [Suspect]
     Dosage: WHITE
     Route: 048
     Dates: end: 20070901
  5. NIASPAN [Suspect]
     Dosage: COATED
     Route: 048
     Dates: start: 20070901
  6. METFORMIN [Concomitant]
     Indication: DIABETES MELLITUS
     Route: 048
  7. BYTTA [Concomitant]
     Indication: DIABETES MELLITUS
     Route: 058
  8. CITALOPRAM HYDROBROMIDE [Concomitant]
     Indication: DRUG USE FOR UNKNOWN INDICATION
  9. ACETYLSALICYLIC ACID [Concomitant]
     Indication: DRUG USE FOR UNKNOWN INDICATION
     Route: 048

REACTIONS (2)
  - DIARRHOEA [None]
  - HYSTERECTOMY [None]
